FAERS Safety Report 6564759-X (Version None)
Quarter: 2010Q1

REPORT INFORMATION
  Report Type: 
  Country: None (occurrence: None)
  Receive Date: 20100201
  Receipt Date: 20100127
  Transmission Date: 20100710
  Serious: Yes (Death)
  Sender: FDA-Public Use
  Company Number: US-SANOFI-AVENTIS-2010SA005233

PATIENT

DRUGS (1)
  1. FERRLECIT [Suspect]
     Route: 065
     Dates: end: 20060101

REACTIONS (2)
  - DEATH [None]
  - UNEVALUABLE EVENT [None]
